FAERS Safety Report 16415567 (Version 1)
Quarter: 2019Q2

REPORT INFORMATION
  Report Type: Spontaneous
  Country: CL (occurrence: CL)
  Receive Date: 20190611
  Receipt Date: 20190611
  Transmission Date: 20190711
  Serious: Yes (Other)
  Sender: FDA-Public Use
  Company Number: CL-PROVELL PHARMACEUTICALS-2068071

PATIENT
  Sex: Female

DRUGS (1)
  1. EUTHYROX [Suspect]
     Active Substance: LEVOTHYROXINE SODIUM
     Indication: AUTOIMMUNE THYROIDITIS

REACTIONS (7)
  - Eye pain [None]
  - Eye irritation [None]
  - Exophthalmos [None]
  - Headache [None]
  - Fear [None]
  - Antibody test abnormal [None]
  - Foreign body sensation in eyes [None]
